FAERS Safety Report 5942591-5 (Version None)
Quarter: 2008Q4

REPORT INFORMATION
  Report Type: 
  Country: None (occurrence: None)
  Receive Date: 20081103
  Receipt Date: 20081021
  Transmission Date: 20090506
  Serious: Yes (Life-Threatening, Hospitalization)
  Sender: FDA-Public Use
  Company Number: ADE2008-0358

PATIENT
  Age: 72 Year
  Sex: Male

DRUGS (16)
  1. SIMVASTATIN [Suspect]
     Indication: HYPERCHOLESTEROLAEMIA
     Dosage: 80MG - PO
     Route: 048
     Dates: start: 20080301
  2. LISINOPRIL [Suspect]
     Indication: HYPERTENSION
     Dosage: 20MG - PO
     Route: 048
     Dates: start: 20041201, end: 20080930
  3. ACTOS [Concomitant]
  4. ADIZEM-XL [Concomitant]
  5. ALLOPURINOL [Concomitant]
  6. DIGOXIN [Concomitant]
  7. EZETIMIBE [Concomitant]
  8. FUROSEMIDE [Concomitant]
  9. GLIMEPIRIDE [Concomitant]
  10. LEVOTHYROXINE SODIUM [Concomitant]
  11. METFORMIN HCL [Concomitant]
  12. NEBIVOLOL HCL [Concomitant]
  13. WARFARIN SODIUM [Concomitant]
  14. CANDESARTAN CILEXETIL [Suspect]
     Indication: HYPERTENSION
     Dosage: 8MG - PO
     Route: 048
     Dates: start: 20051101
  15. AMOXICILLIN + CLAVULANATE POTASSIUM [Suspect]
     Indication: TOOTH ABSCESS
     Dosage: 625MG - TID -
     Dates: start: 20080928, end: 20080930
  16. ERYTHROMYCIN [Suspect]
     Indication: TOOTH ABSCESS
     Dosage: 250MG - QID - PO
     Dates: start: 20080925, end: 20080928

REACTIONS (6)
  - ANGIOEDEMA [None]
  - DYSPHONIA [None]
  - OROPHARYNGEAL PAIN [None]
  - RESPIRATORY DISTRESS [None]
  - SWOLLEN TONGUE [None]
  - TOOTH INFECTION [None]
